FAERS Safety Report 13141535 (Version 1)
Quarter: 2017Q1

REPORT INFORMATION
  Report Type: Spontaneous
  Country: US (occurrence: US)
  Receive Date: 20170124
  Receipt Date: 20170124
  Transmission Date: 20170428
  Serious: No
  Sender: FDA-Public Use
  Company Number: US-ELI_LILLY_AND_COMPANY-US201607008608

PATIENT
  Sex: Female

DRUGS (1)
  1. CYMBALTA [Suspect]
     Active Substance: DULOXETINE HYDROCHLORIDE
     Indication: FIBROMYALGIA
     Dosage: 30 MG, QD
     Route: 048
     Dates: start: 20091007

REACTIONS (6)
  - Paraesthesia [Unknown]
  - Drug withdrawal syndrome [Unknown]
  - Headache [Unknown]
  - Insomnia [Unknown]
  - Dysphoria [Unknown]
  - Hyperhidrosis [Unknown]
